FAERS Safety Report 13160684 (Version 2)
Quarter: 2017Q1

REPORT INFORMATION
  Report Type: Spontaneous
  Country: US (occurrence: US)
  Receive Date: 20170129
  Receipt Date: 20170306
  Transmission Date: 20170428
  Serious: Yes (Other)
  Sender: FDA-Public Use
  Company Number: US-ROCHE-1814737

PATIENT
  Sex: Female

DRUGS (2)
  1. XOLAIR [Suspect]
     Active Substance: OMALIZUMAB
     Indication: URTICARIA
     Route: 058
     Dates: start: 20160114
  2. XOLAIR [Suspect]
     Active Substance: OMALIZUMAB
     Indication: CHRONIC SPONTANEOUS URTICARIA
     Dosage: INJECTION CYCLE HAS VARIED FROM EVERY 2,5 + 9 WEEK
     Route: 058
     Dates: start: 20150202

REACTIONS (4)
  - Pain [Unknown]
  - Abdominal discomfort [Unknown]
  - Swelling [Unknown]
  - Gastrointestinal pain [Unknown]
